FAERS Safety Report 7908694-0 (Version None)
Quarter: 2011Q4

REPORT INFORMATION
  Report Type: 
  Country: None (occurrence: None)
  Receive Date: 20111111
  Receipt Date: 20111101
  Transmission Date: 20120403
  Serious: Yes (Hospitalization, Other)
  Sender: FDA-Public Use
  Company Number: US-BAYER-201036108NA

PATIENT
  Age: 23 Year
  Sex: Female
  Weight: 86.6 kg

DRUGS (8)
  1. OXYCODONE HCL AND ACETAMINOPHEN [Concomitant]
     Dosage: UNK
     Route: 048
     Dates: start: 20100108
  2. TRAZODONE HCL [Concomitant]
     Dosage: 50 MG, UNK
     Route: 048
     Dates: start: 20100101
  3. DROSPIRENONE AND ETHINYL ESTRADIOL [Suspect]
     Indication: ACNE
     Dosage: UNK
     Route: 048
     Dates: start: 20090301, end: 20100101
  4. ALBUTEROL [Concomitant]
  5. OMEPRAZOLE [Concomitant]
     Dosage: 20 MG, UNK
     Dates: start: 20100101
  6. IMITREX [Concomitant]
     Indication: HEADACHE
     Dosage: 50 MG, PRN
     Route: 048
     Dates: start: 20091113
  7. NAPROXEN SODIUM AND PSEUDOEPHEDRINE HYDROCHLORIDE [Concomitant]
     Indication: HEADACHE
     Dosage: 500 MG, PRN
     Route: 048
     Dates: start: 20100108
  8. QUETIAPINE [Concomitant]
     Dosage: 25 MG, UNK
     Route: 048
     Dates: start: 20100108

REACTIONS (11)
  - ANXIETY [None]
  - CONSTIPATION [None]
  - INJURY [None]
  - ABDOMINAL DISTENSION [None]
  - CHOLECYSTECTOMY [None]
  - DEPRESSION [None]
  - CHOLECYSTITIS CHRONIC [None]
  - SCAR [None]
  - DIARRHOEA [None]
  - FLATULENCE [None]
  - DYSPEPSIA [None]
